FAERS Safety Report 21177265 (Version 1)
Quarter: 2022Q3

REPORT INFORMATION
  Report Type: Spontaneous
  Country: US (occurrence: None)
  Receive Date: 20220804
  Receipt Date: 20220804
  Transmission Date: 20221026
  Serious: Yes (Other)
  Sender: FDA-Public Use
  Company Number: None

PATIENT
  Sex: Male
  Weight: 70.2 kg

DRUGS (9)
  1. VOTRIENT [Suspect]
     Active Substance: PAZOPANIB HYDROCHLORIDE
     Indication: Metastases to lung
     Dosage: FREQUENCY : DAILY;?
     Route: 048
     Dates: start: 20220129
  2. PROCHLORPERAZINE [Concomitant]
     Active Substance: PROCHLORPERAZINE
  3. LOPERAMIDE [Concomitant]
     Active Substance: LOPERAMIDE
  4. ONDANSETRON [Concomitant]
     Active Substance: ONDANSETRON
  5. ACETAMINOPHEN [Concomitant]
     Active Substance: ACETAMINOPHEN
  6. GABAPENTIN [Concomitant]
     Active Substance: GABAPENTIN
  7. HYDROMORPHONE [Concomitant]
     Active Substance: HYDROMORPHONE
  8. SERTRALINE [Concomitant]
     Active Substance: SERTRALINE HYDROCHLORIDE
  9. XARELTO [Concomitant]
     Active Substance: RIVAROXABAN

REACTIONS (2)
  - Hair colour changes [None]
  - Chest pain [None]
